FAERS Safety Report 6171565-7 (Version None)
Quarter: 2009Q2

REPORT INFORMATION
  Report Type: 
  Country: None (occurrence: None)
  Receive Date: 20090429
  Receipt Date: 20090424
  Transmission Date: 20091009
  Serious: Yes (Other)
  Sender: FDA-Public Use
  Company Number: US-ASTRAZENECA-2009UW10290

PATIENT

DRUGS (1)
  1. SYMBICORT [Suspect]
     Route: 055
     Dates: start: 20080301

REACTIONS (2)
  - MALIGNANT MELANOMA [None]
  - TUBERCULIN TEST POSITIVE [None]
